FAERS Safety Report 7201633-X (Version None)
Quarter: 2010Q4

REPORT INFORMATION
  Report Type: 
  Country: None (occurrence: None)
  Receive Date: 20101229
  Receipt Date: 20101217
  Transmission Date: 20110411
  Serious: Yes (Other)
  Sender: FDA-Public Use
  Company Number: US-BAYER-2010-006396

PATIENT
  Sex: Female

DRUGS (1)
  1. MIRENA [Suspect]
     Dosage: DAILY DOSE 20 A?G
     Route: 015
     Dates: start: 20080101

REACTIONS (1)
  - DEVICE DISLOCATION [None]
